FAERS Safety Report 7325058-1 (Version None)
Quarter: 2011Q1

REPORT INFORMATION
  Report Type: 
  Country: None (occurrence: None)
  Receive Date: 20110302
  Receipt Date: 20110223
  Transmission Date: 20110831
  Serious: Yes (Hospitalization, Other)
  Sender: FDA-Public Use
  Company Number: US-ASTRAZENECA-2007UW02069

PATIENT
  Age: 17042 Day
  Sex: Male
  Weight: 117 kg

DRUGS (53)
  1. SEROQUEL [Suspect]
     Indication: DEPRESSION
     Dosage: 25 MG TO 600 MG
     Route: 048
     Dates: start: 19971104
  2. CLOZARIL [Concomitant]
     Dosage: 200 MG TO 700 MG
     Dates: start: 19970101
  3. RISPERDAL [Concomitant]
     Dosage: 0.5 MG TO 3 MG
     Dates: start: 19960101
  4. ZYPREXA [Concomitant]
     Dosage: 5 MG TO 15 MG
     Dates: start: 19970901, end: 19971001
  5. LEXAPRO [Concomitant]
     Dosage: 10 TO 30 MG
     Route: 048
  6. COGENTIN [Concomitant]
     Dosage: 1 TO 2 MG
     Route: 048
  7. EFFEXOR [Concomitant]
     Dosage: 75 TO 150 MG
     Route: 048
  8. LUVOX [Concomitant]
     Dates: start: 20071120
  9. SEROQUEL [Suspect]
     Indication: BIPOLAR DISORDER
     Dosage: 25 MG TO 600 MG
     Route: 048
     Dates: start: 19971104
  10. LEVOXYL [Concomitant]
     Route: 048
  11. NIASPAN [Concomitant]
     Dosage: 500 TO 1000 MG
     Route: 048
  12. NEXIUM [Concomitant]
     Route: 048
  13. PRINIVIL [Concomitant]
     Dosage: 10 TO 20 MG
     Route: 048
  14. LOPERAMIDE [Concomitant]
     Route: 048
  15. TESTOSTERONE [Concomitant]
     Indication: HYPERPROLACTINAEMIA
     Route: 030
  16. ALBUTEROL [Concomitant]
     Route: 055
  17. CYMBALTA [Concomitant]
     Dosage: 30 TO 60 MG
     Route: 048
  18. METFORMIN [Concomitant]
     Route: 048
  19. VITAMIN E [Concomitant]
     Route: 048
  20. SEROQUEL [Suspect]
     Indication: SCHIZOAFFECTIVE DISORDER
     Dosage: 25 MG TO 600 MG
     Route: 048
     Dates: start: 19971104
  21. CLOZARIL [Concomitant]
     Dates: start: 19971008
  22. DITROPAN [Concomitant]
     Dosage: 10 TO 15 MG
     Route: 048
  23. ALLEGRA [Concomitant]
     Route: 048
  24. DETROL [Concomitant]
     Dosage: 2 TO 4 MG
     Route: 048
  25. LYRICA [Concomitant]
     Dosage: 50 TO 150 MG
     Route: 048
  26. MUCINEX [Concomitant]
     Dosage: 200 TO 600 MG
     Route: 048
  27. LOPERAMIDE [Concomitant]
     Dates: start: 19971113
  28. FISH OIL [Concomitant]
     Route: 048
  29. CRESTOR [Concomitant]
     Dosage: 10 TO 20 MG
     Route: 048
  30. SEROQUEL [Suspect]
     Route: 048
     Dates: start: 19971107
  31. SEROQUEL [Suspect]
     Dosage: 100 MG TO 700 MG
     Route: 048
     Dates: start: 19971107, end: 20040225
  32. ATENOLOL [Concomitant]
     Dosage: 50 TO 100 MG
     Route: 048
  33. NEURONTIN [Concomitant]
     Dosage: 300 TO 400 MG
     Route: 048
  34. MONOPRIL [Concomitant]
     Dosage: 10 TO 20 MG
     Route: 048
  35. BUPROPION HCL [Concomitant]
     Dosage: 150 TO 300 MG
     Route: 048
  36. GEMFIBROZIL [Concomitant]
     Dates: start: 19971107
  37. SEROQUEL [Suspect]
     Route: 048
     Dates: start: 19971107
  38. SEROQUEL [Suspect]
     Route: 048
     Dates: start: 19971107
  39. ZYPREXA [Concomitant]
     Dosage: 5 MG, 10 MG DISPENSED
     Dates: start: 19971009
  40. MS CONTIN [Concomitant]
     Dosage: 15 TO 50 MG
     Route: 048
  41. CYCLOBENZAPRINE [Concomitant]
     Route: 048
  42. ZETIA [Concomitant]
     Route: 048
  43. LANTUS [Concomitant]
     Dosage: 16 TO 60 UNITS
     Route: 058
  44. GLYBURIDE [Concomitant]
     Dosage: 5 TO 20 MG
     Route: 048
  45. ALBUTEROL [Concomitant]
     Route: 048
  46. OXYCONTIN [Concomitant]
     Dosage: 10 TO 60 MG
     Route: 048
  47. ATIVAN [Concomitant]
     Dosage: 0.5 O 1 MG
     Route: 048
  48. TESTOSTERONE [Concomitant]
     Indication: ANDROGEN DEFICIENCY
     Route: 030
  49. SEROQUEL [Suspect]
     Dosage: 100 MG TO 700 MG
     Route: 048
     Dates: start: 19971107, end: 20040225
  50. SEROQUEL [Suspect]
     Dosage: 100 MG TO 700 MG
     Route: 048
     Dates: start: 19971107, end: 20040225
  51. FLOMAX [Concomitant]
     Route: 048
  52. PROZAC [Concomitant]
     Route: 048
  53. PROTONIX [Concomitant]
     Route: 048

REACTIONS (36)
  - NEUROPATHY PERIPHERAL [None]
  - OBESITY [None]
  - MUSCLE STRAIN [None]
  - BLOOD CHOLESTEROL INCREASED [None]
  - INFECTION [None]
  - URINARY INCONTINENCE [None]
  - MUSCULOSKELETAL DISORDER [None]
  - JOINT SWELLING [None]
  - RADICULITIS [None]
  - MUSCULOSKELETAL PAIN [None]
  - HYPERLIPIDAEMIA [None]
  - DYSPNOEA [None]
  - RENAL FAILURE [None]
  - POLLAKIURIA [None]
  - HEADACHE [None]
  - PSORIATIC ARTHROPATHY [None]
  - CELLULITIS [None]
  - GASTROOESOPHAGEAL REFLUX DISEASE [None]
  - ASTHMA [None]
  - ARTHRALGIA [None]
  - PROSTATITIS [None]
  - AUTOIMMUNE HEPATITIS [None]
  - BIPOLAR DISORDER [None]
  - RESPIRATORY TRACT CONGESTION [None]
  - DIABETIC RETINOPATHY [None]
  - CHEST PAIN [None]
  - ABDOMINAL PAIN [None]
  - NASAL CONGESTION [None]
  - SUICIDAL IDEATION [None]
  - PLEURAL EFFUSION [None]
  - TYPE 2 DIABETES MELLITUS [None]
  - RASH [None]
  - BRONCHOSPASM [None]
  - PNEUMONIA [None]
  - CARDIAC DISORDER [None]
  - CONSTIPATION [None]
